FAERS Safety Report 5833808-6 (Version None)
Quarter: 2008Q3

REPORT INFORMATION
  Report Type: 
  Country: None (occurrence: None)
  Receive Date: 20080804
  Receipt Date: 20080804
  Transmission Date: 20090109
  Serious: Yes (Other)
  Sender: FDA-Public Use
  Company Number: None

PATIENT
  Age: 23 Year
  Sex: Female
  Weight: 63.5036 kg

DRUGS (2)
  1. METOPROLOL SUCCINATE [Suspect]
     Indication: BLOOD PRESSURE DIASTOLIC INCREASED
     Dosage: 1 TABLET DAILY PO
     Route: 048
     Dates: start: 20080513, end: 20080522
  2. METOPROLOL SUCCINATE [Suspect]
     Indication: HEART RATE INCREASED
     Dosage: 1 TABLET DAILY PO
     Route: 048
     Dates: start: 20080513, end: 20080522

REACTIONS (4)
  - DISTURBANCE IN ATTENTION [None]
  - FATIGUE [None]
  - SOMNOLENCE [None]
  - UTERINE SPASM [None]
